FAERS Safety Report 7560039-4 (Version None)
Quarter: 2011Q2

REPORT INFORMATION
  Report Type: 
  Country: None (occurrence: None)
  Receive Date: 20110621
  Receipt Date: 20110616
  Transmission Date: 20111010
  Serious: Yes (Death, Other)
  Sender: FDA-Public Use
  Company Number: PHHY2011US52517

PATIENT
  Sex: Female

DRUGS (1)
  1. RECLAST [Suspect]
     Indication: OSTEOPOROSIS
     Dosage: 5 MG
     Route: 042
     Dates: start: 20100701

REACTIONS (5)
  - MALNUTRITION [None]
  - FEMUR FRACTURE [None]
  - FAILURE TO THRIVE [None]
  - TERMINAL STATE [None]
  - MUSCULAR DYSTROPHY [None]
